FAERS Safety Report 12597859 (Version 1)
Quarter: 2016Q3

REPORT INFORMATION
  Report Type: Spontaneous
  Country: US (occurrence: US)
  Receive Date: 20160726
  Receipt Date: 20160726
  Transmission Date: 20161109
  Serious: No
  Sender: FDA-Public Use
  Company Number: US-MYLANLABS-2016M1003189

PATIENT
  Sex: Female
  Weight: 49.89 kg

DRUGS (2)
  1. ORTHO NOVUM [Concomitant]
     Active Substance: MESTRANOL\NORETHINDRONE
     Indication: CONTRACEPTION
  2. ATORVASTATIN [Suspect]
     Active Substance: ATORVASTATIN
     Indication: BLOOD CHOLESTEROL
     Dosage: 10 MG, QD
     Dates: start: 20151109

REACTIONS (2)
  - Oropharyngeal pain [Not Recovered/Not Resolved]
  - Throat tightness [Not Recovered/Not Resolved]
